FAERS Safety Report 4962410-3 (Version None)
Quarter: 2006Q2

REPORT INFORMATION
  Report Type: 
  Country: None (occurrence: None)
  Receive Date: 20060403
  Receipt Date: 20060403
  Transmission Date: 20061013
  Serious: Yes (Death, Life-Threatening, Hospitalization, Disabling)
  Sender: FDA-Public Use
  Company Number: None

PATIENT
  Age: 59 Year
  Sex: Male

DRUGS (2)
  1. BACTRIM [Suspect]
     Indication: NEPHROLITHIASIS
  2. BACTRIM [Suspect]
     Indication: URINARY TRACT INFECTION

REACTIONS (4)
  - RASH [None]
  - SKIN EXFOLIATION [None]
  - SWELLING [None]
  - TOXIC EPIDERMAL NECROLYSIS [None]
